FAERS Safety Report 25575703 (Version 2)
Quarter: 2025Q3

REPORT INFORMATION
  Report Type: Report from Study
  Country: US (occurrence: US)
  Receive Date: 20250718
  Receipt Date: 20250805
  Transmission Date: 20251021
  Serious: Yes (Hospitalization, Other)
  Sender: ABBVIE
  Company Number: US-ABBVIE-6376010

PATIENT
  Age: 64 Year
  Sex: Female

DRUGS (1)
  1. HUMIRA [Suspect]
     Active Substance: ADALIMUMAB
     Indication: Crohn^s disease
     Route: 058
     Dates: start: 20230330

REACTIONS (8)
  - Constipation [Recovering/Resolving]
  - Abdominal pain [Recovering/Resolving]
  - Confusional state [Recovering/Resolving]
  - Body temperature increased [Unknown]
  - Decreased appetite [Recovering/Resolving]
  - Hernia [Unknown]
  - Acute kidney injury [Recovering/Resolving]
  - Abdominal rigidity [Unknown]

NARRATIVE: CASE EVENT DATE: 20250101
